FAERS Safety Report 9391195 (Version 2)
Quarter: 2015Q1

REPORT INFORMATION
  Report Type: Spontaneous
  Country: ES (occurrence: ES)
  Receive Date: 20130709
  Receipt Date: 20150311
  Transmission Date: 20150721
  Serious: Yes (Other)
  Sender: FDA-Public Use
  Company Number: ES-ASTRAZENECA-2013SE50061

PATIENT
  Age: 61 Year
  Sex: Female

DRUGS (8)
  1. MEROPENEM. [Suspect]
     Active Substance: MEROPENEM
     Indication: NAUSEA
     Dosage: 2 MG/ML
     Route: 042
  2. AMIKACIN [Concomitant]
     Active Substance: AMIKACIN
     Indication: PYREXIA
     Route: 042
  3. AMIKACIN [Concomitant]
     Active Substance: AMIKACIN
     Indication: NAUSEA
     Route: 042
  4. MEROPENEM. [Suspect]
     Active Substance: MEROPENEM
     Indication: MYALGIA
     Dosage: 2 MG/ML
     Route: 042
  5. MEROPENEM. [Suspect]
     Active Substance: MEROPENEM
     Indication: PYREXIA
     Dosage: 2 MG/ML
     Route: 042
  6. AMIKACIN [Concomitant]
     Active Substance: AMIKACIN
     Indication: VOMITING
     Route: 042
  7. AMIKACIN [Concomitant]
     Active Substance: AMIKACIN
     Indication: MYALGIA
     Route: 042
  8. MEROPENEM. [Suspect]
     Active Substance: MEROPENEM
     Indication: VOMITING
     Dosage: 2 MG/ML
     Route: 042

REACTIONS (4)
  - Type IV hypersensitivity reaction [Recovered/Resolved]
  - Rash erythematous [Recovered/Resolved]
  - Mucous membrane disorder [Recovered/Resolved]
  - Skin exfoliation [Recovered/Resolved]

NARRATIVE: CASE EVENT DATE: 201209
